FAERS Safety Report 9307120 (Version 3)
Quarter: 2013Q4

REPORT INFORMATION
  Report Type: Spontaneous
  Country: US (occurrence: US)
  Receive Date: 20130524
  Receipt Date: 20131011
  Transmission Date: 20140711
  Serious: Yes (Other)
  Sender: FDA-Public Use
  Company Number: US-ROCHE-1035694

PATIENT
  Age: 15 Year
  Sex: Male
  Weight: 54.48 kg

DRUGS (3)
  1. ACCUTANE [Suspect]
     Indication: ACNE
     Route: 048
     Dates: start: 20040629, end: 200412
  2. ACCUTANE [Suspect]
     Route: 048
     Dates: start: 20051201, end: 200605
  3. AMNESTEEM [Suspect]
     Indication: PRODUCT USED FOR UNKNOWN INDICATION
     Route: 065

REACTIONS (6)
  - Colitis ulcerative [Unknown]
  - Colitis [Unknown]
  - Anxiety [Unknown]
  - Inflammatory bowel disease [Unknown]
  - Dry skin [Unknown]
  - Visual impairment [Unknown]
